FAERS Safety Report 6661826-7 (Version None)
Quarter: 2010Q1

REPORT INFORMATION
  Report Type: 
  Country: None (occurrence: None)
  Receive Date: 20100331
  Receipt Date: 20090722
  Transmission Date: 20100710
  Serious: No
  Sender: FDA-Public Use
  Company Number: US-BRISTOL-MYERS SQUIBB COMPANY-14712186

PATIENT

DRUGS (1)
  1. ERBITUX [Suspect]
     Dosage: ALSO TAKEN ERBITUX 100MG, LOT# 08C00394A

REACTIONS (1)
  - CHILLS [None]
